FAERS Safety Report 4766523-0 (Version None)
Quarter: 2005Q3

REPORT INFORMATION
  Report Type: 
  Country: None (occurrence: None)
  Receive Date: 20050909
  Receipt Date: 20050901
  Transmission Date: 20060218
  Serious: Yes (Hospitalization)
  Sender: FDA-Public Use
  Company Number: 033-1343-M0100043

PATIENT
  Age: 1 Day
  Sex: Male
  Weight: 3.66 kg

DRUGS (11)
  1. VIRACEPT [Suspect]
     Indication: ILL-DEFINED DISORDER
     Dosage: 750 MG TID (TID), PLACENTAL
     Dates: start: 19990817, end: 20010309
  2. CRIXIVAN [Suspect]
     Indication: ILL-DEFINED DISORDER
     Dosage: PLACENTAL
     Dates: end: 19990817
  3. ZERIT [Suspect]
     Indication: ILL-DEFINED DISORDER
     Dosage: 40 MG BID (BID), PLACENTAL
  4. RETROVIR [Suspect]
     Indication: ILL-DEFINED DISORDER
     Dosage: SEE IMAGE
     Dates: start: 20000309, end: 20000309
  5. RETROVIR [Suspect]
     Indication: PROPHYLAXIS AGAINST HIV INFECTION
     Dosage: SEE IMAGE
     Dates: start: 20000309, end: 20000309
  6. RETROVIR [Suspect]
     Indication: ILL-DEFINED DISORDER
     Dosage: SEE IMAGE
     Dates: start: 20000301, end: 20000401
  7. RETROVIR [Suspect]
     Indication: PROPHYLAXIS AGAINST HIV INFECTION
     Dosage: SEE IMAGE
     Dates: start: 20000301, end: 20000401
  8. EPIVIR [Suspect]
     Indication: ILL-DEFINED DISORDER
     Dosage: 150 MG BID (BID), PLACENTAL
  9. SPASFON (PHLOROGLUCINOL, TRIMETHYLPHLOROGLUCINOL) [Concomitant]
  10. MAGNE-B6 (MAGNESIUM LACTATE, PYRIDOXINE HYDROCHLORIDE) [Concomitant]
  11. VITAMINS (VITAMINS) [Concomitant]

REACTIONS (11)
  - ANAEMIA MACROCYTIC [None]
  - ANAEMIA NEONATAL [None]
  - BLOOD LACTIC ACID INCREASED [None]
  - CAESAREAN SECTION [None]
  - DRUG EXPOSURE DURING PREGNANCY [None]
  - HYPERTRIGLYCERIDAEMIA [None]
  - LACTATE PYRUVATE RATIO INCREASED [None]
  - NEONATAL DISORDER [None]
  - NEUTROPENIA NEONATAL [None]
  - PLATELET COUNT INCREASED [None]
  - REGURGITATION OF FOOD [None]
